FAERS Safety Report 21945222 (Version 1)
Quarter: 2023Q1

REPORT INFORMATION
  Report Type: Spontaneous
  Country: US (occurrence: US)
  Receive Date: 20230202
  Receipt Date: 20230202
  Transmission Date: 20230417
  Serious: Yes (Death, Hospitalization, Other)
  Sender: FDA-Public Use
  Company Number: US-PFIZER INC-202300042701

PATIENT
  Age: 42 Year
  Sex: Male

DRUGS (7)
  1. FENTANYL CITRATE [Suspect]
     Active Substance: FENTANYL CITRATE
     Dosage: UNK (UNKNOWN)
     Route: 065
  2. DIPHENHYDRAMINE HYDROCHLORIDE [Suspect]
     Active Substance: DIPHENHYDRAMINE HYDROCHLORIDE
     Dosage: UNK (UNKNOWN)
     Route: 065
  3. COCAINE [Suspect]
     Active Substance: COCAINE
     Dosage: UNK (UNKNOWN)
     Route: 065
  4. METHAMPHETAMINE HYDROCHLORIDE [Suspect]
     Active Substance: METHAMPHETAMINE HYDROCHLORIDE
     Dosage: UNK (UNKNOWN)
     Route: 065
  5. XYLAZINE [Suspect]
     Active Substance: XYLAZINE
     Dosage: UNK (UNKNOWN)
     Route: 065
  6. QUININE [Suspect]
     Active Substance: QUININE
     Dosage: UNK (UNKNOWN)
     Route: 065
  7. PHENCYCLIDINE [Suspect]
     Active Substance: PHENCYCLIDINE
     Dosage: UNK (UNKNOWN)
     Route: 065

REACTIONS (3)
  - Drug abuse [Fatal]
  - Cardiac arrest [Fatal]
  - Respiratory arrest [Fatal]

NARRATIVE: CASE EVENT DATE: 20210101
